FAERS Safety Report 11233774 (Version 1)
Quarter: 2015Q3

REPORT INFORMATION
  Report Type: Spontaneous
  Country: SE (occurrence: SE)
  Receive Date: 20150702
  Receipt Date: 20150702
  Transmission Date: 20151125
  Serious: Yes (Life-Threatening, Other)
  Sender: FDA-Public Use
  Company Number: SE-ROCHE-1601169

PATIENT
  Age: 60 Year
  Sex: Female

DRUGS (1)
  1. VALIUM [Suspect]
     Active Substance: DIAZEPAM
     Indication: PRODUCT USED FOR UNKNOWN INDICATION
     Route: 048

REACTIONS (5)
  - Cerebrovascular accident [Unknown]
  - Accident [Unknown]
  - Haemorrhage [Unknown]
  - Feeling abnormal [Unknown]
  - Drug abuse [Unknown]

NARRATIVE: CASE EVENT DATE: 1991
